FAERS Safety Report 23923090 (Version 1)
Quarter: 2024Q2

REPORT INFORMATION
  Report Type: Spontaneous
  Country: US (occurrence: US)
  Receive Date: 20240531
  Receipt Date: 20240531
  Transmission Date: 20240716
  Serious: No
  Sender: FDA-Public Use
  Company Number: US-Axsome Therapeutics, Inc.-AXS202405-000572

PATIENT
  Age: 47 Year
  Sex: Male

DRUGS (5)
  1. AUVELITY [Suspect]
     Active Substance: BUPROPION HYDROCHLORIDE\DEXTROMETHORPHAN HYDROBROMIDE
     Indication: Major depression
     Dates: start: 2024
  2. XANAX XR [Suspect]
     Active Substance: ALPRAZOLAM
     Indication: Panic attack
     Dosage: UNK
  3. DISULFIRAM [Concomitant]
     Active Substance: DISULFIRAM
     Indication: Alcohol use disorder
     Dosage: UNK
  4. SEROQUEL XR [Concomitant]
     Active Substance: QUETIAPINE FUMARATE
     Indication: Affective disorder
  5. SEROQUEL [Concomitant]
     Active Substance: QUETIAPINE FUMARATE
     Indication: Affective disorder
     Dosage: 3 TABLETS

REACTIONS (13)
  - Obsessive rumination [Unknown]
  - Feeding disorder [Unknown]
  - Obsessive-compulsive disorder [Unknown]
  - Palpitations [Unknown]
  - Drug interaction [Unknown]
  - Panic attack [Unknown]
  - Agitation [Unknown]
  - Irritability [Unknown]
  - Depression [Unknown]
  - Labelled drug-food interaction issue [Unknown]
  - Restlessness [Unknown]
  - Hyperhidrosis [Unknown]
  - Vomiting [Unknown]

NARRATIVE: CASE EVENT DATE: 20240101
